FAERS Safety Report 19656592 (Version 1)
Quarter: 2021Q3

REPORT INFORMATION
  Report Type: Report from Study
  Country: US (occurrence: US)
  Receive Date: 20210804
  Receipt Date: 20210804
  Transmission Date: 20211014
  Serious: Yes (Hospitalization, Disabling)
  Sender: FDA-Public Use
  Company Number: US-SA-2021SA022970

PATIENT
  Age: 86 Year
  Sex: Female

DRUGS (2)
  1. DUPILUMAB [Suspect]
     Active Substance: DUPILUMAB
     Dosage: 300 MG, QOW
     Route: 058
     Dates: start: 20190611, end: 20201231
  2. DUPILUMAB [Suspect]
     Active Substance: DUPILUMAB
     Indication: DERMATITIS ATOPIC
     Dosage: 600 MG, 1X
     Route: 058
     Dates: start: 20190523, end: 20190523

REACTIONS (5)
  - Memory impairment [Unknown]
  - Cardiac operation [Unknown]
  - Stress fracture [Unknown]
  - Product dose omission issue [Unknown]
  - Walking aid user [Unknown]

NARRATIVE: CASE EVENT DATE: 202003
